FAERS Safety Report 6882758-5 (Version None)
Quarter: 2010Q3

REPORT INFORMATION
  Report Type: 
  Country: None (occurrence: None)
  Receive Date: 20100729
  Receipt Date: 20100714
  Transmission Date: 20110219
  Serious: Yes (Hospitalization, Other)
  Sender: FDA-Public Use
  Company Number: US-PFIZER INC-2010082539

PATIENT
  Sex: Female
  Weight: 65 kg

DRUGS (13)
  1. CARBOPLATIN [Suspect]
     Dosage: UNK
  2. TAXOL [Suspect]
     Dosage: UNK
  3. IBUPROFEN [Suspect]
     Indication: PAIN
     Dosage: UNK
  4. TAMOXIFEN CITRATE [Suspect]
     Indication: LUNG NEOPLASM MALIGNANT
     Dosage: 10 MG, UNK
     Dates: start: 20100401, end: 20100101
  5. MEGACE [Suspect]
     Indication: ENDOMETRIAL CANCER
     Dosage: 40 MG, 1X/DAY
     Route: 048
     Dates: start: 20100401, end: 20100101
  6. XANAX [Concomitant]
     Indication: ANXIETY
     Dosage: UNK
     Route: 048
  7. ATIVAN [Concomitant]
     Indication: ANXIETY
     Dosage: UNK
     Route: 048
  8. ALBUTEROL [Concomitant]
     Indication: BRONCHIAL HYPERREACTIVITY
     Dosage: UNK
  9. BENADRYL [Concomitant]
     Route: 061
  10. BENADRYL [Concomitant]
     Route: 048
  11. MORPHINE [Concomitant]
  12. MOMETASONE FUROATE [Concomitant]
  13. ASCORBIC ACID [Concomitant]

REACTIONS (12)
  - ARTHRITIS [None]
  - BACK PAIN [None]
  - BLOOD PRESSURE INCREASED [None]
  - DRUG INEFFECTIVE [None]
  - FEELING COLD [None]
  - HAEMORRHOIDS [None]
  - HOT FLUSH [None]
  - HYPOACUSIS [None]
  - MENOPAUSAL SYMPTOMS [None]
  - NAIL DISORDER [None]
  - PNEUMONITIS [None]
  - SOMNOLENCE [None]
